FAERS Safety Report 7895747-9 (Version None)
Quarter: 2011Q4

REPORT INFORMATION
  Report Type: 
  Country: None (occurrence: None)
  Receive Date: 20111106
  Receipt Date: 20110830
  Transmission Date: 20120403
  Serious: No
  Sender: FDA-Public Use
  Company Number: US-AMGEN-USASP2011044499

PATIENT
  Age: 40 Year
  Sex: Female
  Weight: 68.027 kg

DRUGS (2)
  1. MULTI-VITAMIN [Concomitant]
  2. ENBREL [Suspect]
     Dosage: 50 MG, QWK
     Route: 058

REACTIONS (1)
  - INJECTION SITE HAEMATOMA [None]
